FAERS Safety Report 22136842 (Version 1)
Quarter: 2023Q1

REPORT INFORMATION
  Report Type: Report from Study
  Country: CO (occurrence: CO)
  Receive Date: 20230324
  Receipt Date: 20230324
  Transmission Date: 20230417
  Serious: Yes (Other)
  Sender: FDA-Public Use
  Company Number: CO-AMGEN-COLSL2022226624

PATIENT
  Age: 69 Year
  Sex: Male

DRUGS (3)
  1. VECTIBIX [Suspect]
     Active Substance: PANITUMUMAB
     Indication: Colorectal cancer metastatic
     Dosage: 450 MILLIGRAM, Q2WK (BIWEEKLY)
     Route: 040
     Dates: start: 20221201
  2. VECTIBIX [Suspect]
     Active Substance: PANITUMUMAB
     Dosage: 450 MILLIGRAM, Q3WK (EVERY 21 DAYS)
     Route: 040
  3. Artificial tears [Concomitant]
     Indication: Product used for unknown indication
     Dosage: UNK UNK, Q12H (APPLY ONE DROP IN EACH EYE EVERY 12 HOURS)
     Route: 065
     Dates: start: 20230104

REACTIONS (9)
  - Psychotic disorder due to a general medical condition [Not Recovered/Not Resolved]
  - Rash [Not Recovered/Not Resolved]
  - Erythema [Not Recovered/Not Resolved]
  - Skin exfoliation [Not Recovered/Not Resolved]
  - Pruritus [Not Recovered/Not Resolved]
  - Vomiting [Not Recovered/Not Resolved]
  - Diarrhoea [Not Recovered/Not Resolved]
  - Off label use [Unknown]
  - General physical condition abnormal [Not Recovered/Not Resolved]

NARRATIVE: CASE EVENT DATE: 20221201
